FAERS Safety Report 17772458 (Version 4)
Quarter: 2022Q3

REPORT INFORMATION
  Report Type: Report from Study
  Country: GB (occurrence: GB)
  Receive Date: 20200512
  Receipt Date: 20220821
  Transmission Date: 20221027
  Serious: Yes (Other)
  Sender: FDA-Public Use
  Company Number: None

PATIENT
  Sex: Female

DRUGS (1)
  1. ERELZI [Suspect]
     Active Substance: ETANERCEPT-SZZS
     Indication: Rheumatoid arthritis
     Dosage: 50 MG, QW (AS DIRECTED)
     Route: 065
     Dates: start: 20190806

REACTIONS (8)
  - Seizure [Unknown]
  - Arthralgia [Unknown]
  - Insomnia [Unknown]
  - Osteoporosis [Unknown]
  - Pain in extremity [Unknown]
  - Mobility decreased [Unknown]
  - Pain [Unknown]
  - Drug ineffective [Unknown]
